FAERS Safety Report 9205768 (Version 2)
Quarter: 2013Q2

REPORT INFORMATION
  Report Type: Spontaneous
  Country: US (occurrence: None)
  Receive Date: 20120731
  Receipt Date: 20121130
  Transmission Date: 20140414
  Serious: Yes (Hospitalization)
  Sender: FDA-Public Use
  Company Number: US201205009042

PATIENT
  Age: 24 Year
  Sex: Female
  Weight: 97.1 kg

DRUGS (4)
  1. BYDUREON [Suspect]
     Route: 058
  2. AMLODIPINE (AMLODIPINE) ONGOING [Concomitant]
  3. HYDROCHLOROTHIAZIDE (HYDROCHLOROTHIAZIDE) [Concomitant]
  4. PHENTERMINE (PHENTERMINE) [Concomitant]

REACTIONS (4)
  - Nausea [None]
  - Vomiting [None]
  - Diarrhoea [None]
  - Off label use [None]
